FAERS Safety Report 5443316-2 (Version None)
Quarter: 2007Q3

REPORT INFORMATION
  Report Type: 
  Country: None (occurrence: None)
  Receive Date: 20070831
  Receipt Date: 20070831
  Transmission Date: 20080115
  Serious: Yes (Hospitalization)
  Sender: FDA-Public Use
  Company Number: None

PATIENT
  Sex: Male
  Weight: 108 kg

DRUGS (15)
  1. CETUXIMAB 400MG/M2, 250MG/M2; BRISTOL-MYERS-SQUIBB [Suspect]
     Indication: HEPATIC NEOPLASM MALIGNANT
     Dosage: 400 MG/M2, 250 MG/M2; 8/10/07, 8/17/07 I.V.
     Route: 042
     Dates: start: 20070810
  2. CETUXIMAB 400MG/M2, 250MG/M2; BRISTOL-MYERS-SQUIBB [Suspect]
     Indication: HEPATIC NEOPLASM MALIGNANT
     Dosage: 400 MG/M2, 250 MG/M2; 8/10/07, 8/17/07 I.V.
     Route: 042
     Dates: start: 20070817
  3. OXALIPLATIN 130 MG/M2; SANOFI-AVENTIS [Suspect]
     Indication: HEPATIC NEOPLASM MALIGNANT
     Dosage: 130 MG/M2 8/10/07 I.V.
     Route: 042
     Dates: start: 20070810
  4. ACIPHEX [Concomitant]
  5. AVODART [Concomitant]
  6. IRON [Concomitant]
  7. IMODIUM [Concomitant]
  8. LISINOPRIL AND HYDROCHLOROTHIAZIDE [Concomitant]
  9. FUROSEMIDE [Concomitant]
  10. LOPRESSOR [Concomitant]
  11. MEGACE [Concomitant]
  12. OPIUM TINCTURE [Concomitant]
  13. PHENERGAN HCL [Concomitant]
  14. QUESTRAN [Concomitant]
  15. ZOFRAN [Concomitant]

REACTIONS (8)
  - DEHYDRATION [None]
  - DIARRHOEA [None]
  - HEPATIC NEOPLASM MALIGNANT [None]
  - HYPERKALAEMIA [None]
  - METABOLIC ACIDOSIS [None]
  - MUCOSAL INFLAMMATION [None]
  - PANCREATITIS [None]
  - URINARY TRACT INFECTION [None]
